FAERS Safety Report 6252492-3 (Version None)
Quarter: 2009Q2

REPORT INFORMATION
  Report Type: 
  Country: None (occurrence: None)
  Receive Date: 20090629
  Receipt Date: 20090629
  Transmission Date: 20091009
  Serious: No
  Sender: FDA-Public Use
  Company Number: None

PATIENT
  Age: 34 Year
  Sex: Female
  Weight: 100.2449 kg

DRUGS (4)
  1. LAMOTRIGINE [Suspect]
     Indication: BIPOLAR DISORDER
     Dosage: 25 MG QD ORAL
     Route: 048
     Dates: start: 20090611, end: 20090621
  2. ABILIFY [Concomitant]
  3. AMBIEN [Concomitant]
  4. LORAZEPAM [Concomitant]

REACTIONS (4)
  - LYMPHADENOPATHY [None]
  - PAIN [None]
  - RASH [None]
  - SKIN WARM [None]
